FAERS Safety Report 12649600 (Version 1)
Quarter: 2016Q3

REPORT INFORMATION
  Report Type: Spontaneous
  Country: US (occurrence: US)
  Receive Date: 20160812
  Receipt Date: 20160812
  Transmission Date: 20161109
  Serious: Yes (Other)
  Sender: FDA-Public Use
  Company Number: US-REGENERON PHARMACEUTICALS, INC.-2016-20208

PATIENT

DRUGS (6)
  1. EYLEA [Suspect]
     Active Substance: AFLIBERCEPT
     Dosage: 2 MG MILLIGRAM(S), OS, SINGLE
     Route: 031
     Dates: start: 20160509, end: 20160509
  2. EYLEA [Suspect]
     Active Substance: AFLIBERCEPT
     Dosage: 2 MG MILLIGRAM(S), UNK, OS, DATE OF LAST DOSE
     Route: 031
     Dates: start: 20160808, end: 20160808
  3. EYLEA [Suspect]
     Active Substance: AFLIBERCEPT
     Dosage: 2 MG MILLIGRAM(S), OS, EVERY 4 WEEKS
     Route: 031
  4. EYLEA [Suspect]
     Active Substance: AFLIBERCEPT
     Dosage: 2 MG MILLIGRAM(S), OS, EVERY 8 WEEKS
     Route: 031
  5. EYLEA [Suspect]
     Active Substance: AFLIBERCEPT
     Dosage: 2 MG MILLIGRAM(S), OS, SINGLE
     Route: 031
     Dates: start: 20160606, end: 20160606
  6. EYLEA [Suspect]
     Active Substance: AFLIBERCEPT
     Indication: NEOVASCULAR AGE-RELATED MACULAR DEGENERATION
     Dosage: 2 MG MILLIGRAM(S), OS, EVERY 4 WEEKS
     Route: 031

REACTIONS (2)
  - Drug effect decreased [Unknown]
  - Macular degeneration [Unknown]

NARRATIVE: CASE EVENT DATE: 20160808
